FAERS Safety Report 19154213 (Version 1)
Quarter: 2021Q2

REPORT INFORMATION
  Report Type: Report from Study
  Country: None (occurrence: GB)
  Receive Date: 20210419
  Receipt Date: 20210419
  Transmission Date: 20210717
  Serious: Yes (Other)
  Sender: FDA-Public Use
  Company Number: GB-CLINIGEN GROUP PLC/ CLINIGEN HEALTHCARE LTD-GB-CLGN-21-00192

PATIENT
  Sex: Female

DRUGS (1)
  1. FOSCAVIR [Suspect]
     Active Substance: FOSCARNET SODIUM
     Indication: CYTOMEGALOVIRUS INFECTION REACTIVATION
     Dates: start: 20210323, end: 20210401

REACTIONS (4)
  - Cardiac failure [Unknown]
  - Acute kidney injury [Unknown]
  - Off label use [Unknown]
  - Nephropathy toxic [Unknown]
